FAERS Safety Report 5628800-0 (Version None)
Quarter: 2008Q1

REPORT INFORMATION
  Report Type: 
  Country: None (occurrence: None)
  Receive Date: 20080215
  Receipt Date: 20080206
  Transmission Date: 20080703
  Serious: Yes (Other)
  Sender: FDA-Public Use
  Company Number: US-PFIZER INC-2008012776

PATIENT
  Sex: Male

DRUGS (1)
  1. CHANTIX [Suspect]
     Dates: start: 20080101, end: 20080131

REACTIONS (4)
  - DEHYDRATION [None]
  - FACIAL BONES FRACTURE [None]
  - FALL [None]
  - SURGERY [None]
